FAERS Safety Report 7320154-7 (Version None)
Quarter: 2011Q1

REPORT INFORMATION
  Report Type: 
  Country: None (occurrence: None)
  Receive Date: 20110228
  Receipt Date: 20110215
  Transmission Date: 20110831
  Serious: Yes (Other)
  Sender: FDA-Public Use
  Company Number: IT-JNJFOC-20110207689

PATIENT

DRUGS (3)
  1. CAELYX [Suspect]
     Indication: BREAST CANCER
     Route: 042
  2. CISPLATIN [Suspect]
     Indication: BREAST CANCER
     Dosage: THROUGH 21 DAYS FOR 8 CYCLES
     Route: 042
  3. FLUOROURACIL [Suspect]
     Indication: BREAST CANCER
     Dosage: THROUGH 21 DAYS FOR 8 CYCLES
     Route: 042

REACTIONS (2)
  - TOXICITY TO VARIOUS AGENTS [None]
  - LIVER FUNCTION TEST ABNORMAL [None]
